FAERS Safety Report 16298305 (Version 3)
Quarter: 2021Q1

REPORT INFORMATION
  Report Type: Spontaneous
  Country: US (occurrence: US)
  Receive Date: 20190510
  Receipt Date: 20210202
  Transmission Date: 20210419
  Serious: Yes (Other)
  Sender: FDA-Public Use
  Company Number: US-ASTRAZENECA-2019SE65438

PATIENT
  Age: 18063 Day
  Sex: Male
  Weight: 96.6 kg

DRUGS (71)
  1. PRILOSEC [Suspect]
     Active Substance: OMEPRAZOLE MAGNESIUM
     Indication: GASTROOESOPHAGEAL REFLUX DISEASE
     Route: 048
     Dates: start: 1990, end: 1991
  2. PROTONIX [Suspect]
     Active Substance: PANTOPRAZOLE SODIUM
     Indication: GASTROOESOPHAGEAL REFLUX DISEASE
     Route: 065
     Dates: start: 200001, end: 201811
  3. ASPIRIN. [Concomitant]
     Active Substance: ASPIRIN
     Indication: CEREBROVASCULAR ACCIDENT
     Dates: start: 20021020, end: 20200415
  4. ROPININROLE [Concomitant]
     Indication: RESTLESS LEGS SYNDROME
     Dates: start: 1999
  5. ISOSORBIDE. [Concomitant]
     Active Substance: ISOSORBIDE
     Indication: CARDIAC DISORDER
  6. ONDASETRON [Concomitant]
     Active Substance: ONDANSETRON
     Indication: NAUSEA
     Dates: start: 202004
  7. CLOPIDOGREL [Concomitant]
     Active Substance: CLOPIDOGREL BISULFATE
     Indication: CEREBROVASCULAR ACCIDENT
     Dates: start: 2003
  8. HYDROCERIN [Concomitant]
     Indication: DRY SKIN
     Dates: start: 2016
  9. GUAIFENESIN. [Concomitant]
     Active Substance: GUAIFENESIN
  10. MUPIROCIN. [Concomitant]
     Active Substance: MUPIROCIN
  11. CARBIDOPA. [Concomitant]
     Active Substance: CARBIDOPA
  12. PIOGLITAZONE HCL [Concomitant]
     Active Substance: PIOGLITAZONE
  13. PRILOSEC [Suspect]
     Active Substance: OMEPRAZOLE MAGNESIUM
     Indication: GASTROOESOPHAGEAL REFLUX DISEASE
     Dosage: GENERIC
     Route: 065
     Dates: start: 20040424, end: 20160203
  14. GLYBURIDE. [Concomitant]
     Active Substance: GLYBURIDE
     Indication: DIABETES MELLITUS
     Dates: start: 20110402
  15. SODIUM PHOSPHATE [Concomitant]
     Active Substance: SODIUM PHOSPHATE
     Indication: CONSTIPATION
     Dates: start: 202011
  16. MYCOPHENOLATE [Concomitant]
     Active Substance: MYCOPHENOLIC ACID
     Indication: IMMUNOSUPPRESSANT DRUG THERAPY
     Dates: start: 2010
  17. LOSARTAN. [Concomitant]
     Active Substance: LOSARTAN
     Indication: BLOOD PRESSURE ABNORMAL
     Dates: start: 2003
  18. NITROGLYCERIN. [Concomitant]
     Active Substance: NITROGLYCERIN
     Indication: CHEST PAIN
     Dates: start: 2003
  19. PROMETHAZINE HCL [Concomitant]
     Active Substance: PROMETHAZINE HYDROCHLORIDE
  20. METOLAZONE. [Concomitant]
     Active Substance: METOLAZONE
  21. IBUPROFEN. [Concomitant]
     Active Substance: IBUPROFEN
  22. AMLODIPINE BESYLATE. [Concomitant]
     Active Substance: AMLODIPINE BESYLATE
  23. ASPIRIN. [Concomitant]
     Active Substance: ASPIRIN
     Indication: MYOCARDIAL INFARCTION
     Dates: start: 20021020, end: 20200415
  24. CARVEDILOL. [Concomitant]
     Active Substance: CARVEDILOL
     Indication: HYPERTENSION
     Dates: start: 2003
  25. LATANOPROST. [Concomitant]
     Active Substance: LATANOPROST
     Indication: GLAUCOMA
     Dates: start: 2018
  26. HYDRALAZINE [Concomitant]
     Active Substance: HYDRALAZINE HYDROCHLORIDE
     Indication: CHEST PAIN
     Dates: start: 2003
  27. CHLORHEXIDINE GLUCONATE. [Concomitant]
     Active Substance: CHLORHEXIDINE GLUCONATE
  28. ERGOCALCIFEROL. [Concomitant]
     Active Substance: ERGOCALCIFEROL
  29. LINEZOLID. [Concomitant]
     Active Substance: LINEZOLID
  30. RIFAMPIN. [Concomitant]
     Active Substance: RIFAMPIN
  31. MEGESTROL ACETATE. [Concomitant]
     Active Substance: MEGESTROL ACETATE
  32. PRILOSEC [Suspect]
     Active Substance: OMEPRAZOLE MAGNESIUM
     Indication: GASTROOESOPHAGEAL REFLUX DISEASE
     Route: 048
     Dates: start: 200001, end: 201811
  33. PREVACID [Suspect]
     Active Substance: LANSOPRAZOLE
     Indication: GASTROOESOPHAGEAL REFLUX DISEASE
     Route: 065
     Dates: start: 1996, end: 20050819
  34. PIOGLITAZONE. [Concomitant]
     Active Substance: PIOGLITAZONE
     Indication: DIABETES MELLITUS
     Dates: start: 20021020, end: 20200415
  35. ROSIGLITAZONE [Concomitant]
     Active Substance: ROSIGLITAZONE
     Indication: DIABETES MELLITUS
     Dates: start: 20000629, end: 20120908
  36. GLIMEPIRIDE. [Concomitant]
     Active Substance: GLIMEPIRIDE
     Indication: DIABETES MELLITUS
     Dates: start: 20030801, end: 20040902
  37. TACROLIMUS. [Concomitant]
     Active Substance: TACROLIMUS
     Indication: IMMUNOSUPPRESSANT DRUG THERAPY
     Dates: start: 2010
  38. ATROPINE. [Concomitant]
     Active Substance: ATROPINE
  39. SCOPOLAMINE [Concomitant]
     Active Substance: SCOPOLAMINE
  40. CLOTRIMAZOLE. [Concomitant]
     Active Substance: CLOTRIMAZOLE
  41. TRAVOPROST. [Concomitant]
     Active Substance: TRAVOPROST
  42. CHOLECALCIFEROL [Concomitant]
     Active Substance: CHOLECALCIFEROL
  43. SPIRONOLACTONE. [Concomitant]
     Active Substance: SPIRONOLACTONE
     Indication: BLOOD PRESSURE ABNORMAL
  44. NOVOLOG [Concomitant]
     Active Substance: INSULIN ASPART
     Indication: DIABETES MELLITUS
     Dates: start: 2000
  45. FAMOTIDINE. [Concomitant]
     Active Substance: FAMOTIDINE
  46. BRIMONIDINE TARTRATE. [Concomitant]
     Active Substance: BRIMONIDINE TARTRATE
  47. SEVELAMER HCL [Concomitant]
     Active Substance: SEVELAMER HYDROCHLORIDE
  48. PREDNISONE. [Concomitant]
     Active Substance: PREDNISONE
     Indication: SWELLING
     Dates: start: 2010
  49. CLOPIDOGREL [Concomitant]
     Active Substance: CLOPIDOGREL BISULFATE
     Indication: MYOCARDIAL INFARCTION
     Dates: start: 2003
  50. CARVEDILOL. [Concomitant]
     Active Substance: CARVEDILOL
     Indication: CARDIAC DISORDER
     Dates: start: 2003
  51. POLYETHYLENE GLYCOL [Concomitant]
     Active Substance: POLYETHYLENE GLYCOLS
     Indication: ABDOMINAL DISCOMFORT
     Dates: start: 202010
  52. TUMS [Concomitant]
     Active Substance: CALCIUM CARBONATE
     Dates: start: 1999, end: 2000
  53. TETRACYCLINE [Concomitant]
     Active Substance: TETRACYCLINE
  54. AMITRIPTYLINE HCL [Concomitant]
     Active Substance: AMITRIPTYLINE
  55. CEPHALEXIN. [Concomitant]
     Active Substance: CEPHALEXIN
  56. QUININE SULFATE. [Concomitant]
     Active Substance: QUININE SULFATE
  57. POTASSIUM CHLORIDE. [Concomitant]
     Active Substance: POTASSIUM CHLORIDE
  58. NEXIUM [Suspect]
     Active Substance: ESOMEPRAZOLE MAGNESIUM
     Indication: GASTROOESOPHAGEAL REFLUX DISEASE
     Route: 048
     Dates: start: 2001
  59. PROTONIX [Suspect]
     Active Substance: PANTOPRAZOLE SODIUM
     Indication: GASTROOESOPHAGEAL REFLUX DISEASE
     Dosage: GENERIC
     Route: 065
     Dates: start: 20160306, end: 20200301
  60. PROTONIX [Suspect]
     Active Substance: PANTOPRAZOLE SODIUM
     Indication: GASTROOESOPHAGEAL REFLUX DISEASE
     Route: 065
     Dates: start: 200506
  61. ATORVASTATIN [Concomitant]
     Active Substance: ATORVASTATIN
     Indication: BLOOD CHOLESTEROL ABNORMAL
     Dates: start: 2003
  62. RANITIDINE. [Concomitant]
     Active Substance: RANITIDINE
     Dates: start: 20021020, end: 20050211
  63. CALCIUM ACETATE. [Concomitant]
     Active Substance: CALCIUM ACETATE
  64. VANCOMYCIN [Concomitant]
     Active Substance: VANCOMYCIN
  65. NABUMETONE. [Concomitant]
     Active Substance: NABUMETONE
  66. POLYVINYL ALCOHOL [Concomitant]
     Active Substance: POLYVINYL ALCOHOL
  67. NEXIUM [Suspect]
     Active Substance: ESOMEPRAZOLE MAGNESIUM
     Indication: GASTROOESOPHAGEAL REFLUX DISEASE
     Route: 048
     Dates: start: 200001, end: 201811
  68. TROGLITAZONE [Concomitant]
     Active Substance: TROGLITAZONE
     Indication: DIABETES MELLITUS
     Dates: start: 20020830
  69. BUMETANIDE. [Concomitant]
     Active Substance: BUMETANIDE
     Indication: DIURETIC THERAPY
     Dates: start: 202010
  70. PREDNISONE. [Concomitant]
     Active Substance: PREDNISONE
     Indication: INFLAMMATION
     Dates: start: 2010
  71. DOCUSATE [Concomitant]
     Active Substance: DOCUSATE
     Indication: ABDOMINAL DISCOMFORT
     Dates: start: 202004

REACTIONS (7)
  - Nephrogenic anaemia [Unknown]
  - Chronic kidney disease-mineral and bone disorder [Unknown]
  - Renal failure [Unknown]
  - Hyperparathyroidism secondary [Unknown]
  - Chronic kidney disease [Not Recovered/Not Resolved]
  - Acute kidney injury [Not Recovered/Not Resolved]
  - End stage renal disease [Not Recovered/Not Resolved]

NARRATIVE: CASE EVENT DATE: 20051007
